FAERS Safety Report 4547046-0 (Version None)
Quarter: 2005Q1

REPORT INFORMATION
  Report Type: 
  Country: None (occurrence: None)
  Receive Date: 20041223
  Receipt Date: 20041109
  Transmission Date: 20050727
  Serious: No
  Sender: FDA-Public Use
  Company Number: US-JNJFOC-20040704288

PATIENT
  Age: 24 Year
  Sex: Female
  Weight: 49.8957 kg

DRUGS (3)
  1. ORTHO EVRA [Suspect]
     Indication: CONTRACEPTION
     Dosage: 1 DOSE(S), 3 IN 4 WEEK, TRANSDERMAL
     Route: 062
     Dates: start: 20031201, end: 20040628
  2. PREVACID [Concomitant]
  3. ZELNOMR (TEGASEROD) [Concomitant]

REACTIONS (3)
  - APPLICATION SITE REACTION [None]
  - DYSMENORRHOEA [None]
  - LYMPHADENOPATHY [None]
